FAERS Safety Report 9570494 (Version 3)
Quarter: 2014Q2

REPORT INFORMATION
  Report Type: Spontaneous
  Country: US (occurrence: US)
  Receive Date: 20130930
  Receipt Date: 20140618
  Transmission Date: 20141212
  Serious: Yes (Other)
  Sender: FDA-Public Use
  Company Number: US-AMGEN-USASP2013063789

PATIENT
  Age: 54 Year
  Sex: Female
  Weight: 65.76 kg

DRUGS (12)
  1. ENBREL [Suspect]
     Indication: RHEUMATOID ARTHRITIS
     Dosage: 50 MG, QWK
     Route: 058
     Dates: start: 20130514
  2. FLOMAX                             /00889901/ [Concomitant]
     Dosage: 0.4 MG, UNK
  3. LORTAB                             /00607101/ [Concomitant]
     Dosage: 10-500 MG, UNK
  4. CARISOPRODOL [Concomitant]
     Dosage: 250 MG, UNK
  5. GABAPENTIN [Concomitant]
     Dosage: 300 MG, UNK
  6. VISTARIL                           /00058402/ [Concomitant]
     Dosage: 25 MG, UNK
  7. ALENDRONATE [Concomitant]
     Dosage: 10 MG, UNK
  8. PROPANTHELINE [Concomitant]
     Dosage: 15 MG, UNK
  9. PLAQUENIL                          /00072602/ [Concomitant]
     Dosage: 200 MG, UNK
  10. ALBUTEROL                          /00139501/ [Concomitant]
     Dosage: 90 MCG, UNK
  11. CALCIUM D                          /00944201/ [Concomitant]
     Dosage: UNK
  12. PREDNISONE [Concomitant]
     Dosage: 1 MG, UNK

REACTIONS (5)
  - Immunodeficiency [Not Recovered/Not Resolved]
  - Malaise [Not Recovered/Not Resolved]
  - Ear congestion [Unknown]
  - Sinusitis [Unknown]
  - Bronchitis [Not Recovered/Not Resolved]
